FAERS Safety Report 4492016-4 (Version None)
Quarter: 2004Q4

REPORT INFORMATION
  Report Type: 
  Country: None (occurrence: None)
  Receive Date: 20041101
  Receipt Date: 20040810
  Transmission Date: 20050328
  Serious: Yes (Death)
  Sender: FDA-Public Use
  Company Number: A01200403850

PATIENT
  Age: 83 Year
  Sex: Male

DRUGS (6)
  1. ELIGARD [Suspect]
     Indication: PROSTATE CANCER
     Dosage: 7.5 MG ONCE SUBCUTANEOUS
     Route: 058
     Dates: start: 20040630, end: 20040630
  2. CONCOR PLUS              (BISOPROLOL FUMARATE + HYDROCHOROTHIAZIDE) [Concomitant]
  3. PENTAERITHRITYL TETRANITRATE [Concomitant]
  4. ALLOPURINOL [Concomitant]
  5. HEPARIN-FRACTION        (HEPARIN-FRACTION, SODIUM SALT) [Concomitant]
  6. TORSEMIDE [Concomitant]

REACTIONS (1)
  - CARDIAC FAILURE [None]
